FAERS Safety Report 6241442-1 (Version None)
Quarter: 2009Q2

REPORT INFORMATION
  Report Type: 
  Country: None (occurrence: None)
  Receive Date: 20090619
  Receipt Date: 20090619
  Transmission Date: 20091009
  Serious: Yes (Hospitalization)
  Sender: FDA-Public Use
  Company Number: None

PATIENT
  Age: 38 Year
  Sex: Female
  Weight: 58.9676 kg

DRUGS (2)
  1. ZICAM COLD REMEDY GEL SWABS MATRIXX [Suspect]
     Indication: NASOPHARYNGITIS
     Dosage: 1 SWAB EVERY 4 HOURS NASAL
     Route: 045
     Dates: start: 20080101, end: 20090201
  2. ZICAM COLD REMEDY NASAL GEL MATRIXX [Suspect]
     Indication: NASOPHARYNGITIS
     Dosage: 1 SPRAY EVERY 4 HOURS NASAL
     Route: 045
     Dates: start: 20080101, end: 20090201

REACTIONS (1)
  - ANOSMIA [None]
